FAERS Safety Report 17931858 (Version 1)
Quarter: 2020Q2

REPORT INFORMATION
  Report Type: Report from Study
  Country: None (occurrence: CA)
  Receive Date: 20200624
  Receipt Date: 20200624
  Transmission Date: 20200714
  Serious: Yes (Hospitalization, Other)
  Sender: FDA-Public Use
  Company Number: CA-ABBVIE-20K-028-3454223-00

PATIENT
  Sex: Male

DRUGS (2)
  1. HUMIRA [Suspect]
     Active Substance: ADALIMUMAB
     Route: 058
     Dates: end: 20200612
  2. HUMIRA [Suspect]
     Active Substance: ADALIMUMAB
     Indication: CROHN^S DISEASE
     Route: 058
     Dates: start: 20100112

REACTIONS (17)
  - Cardiac infection [Unknown]
  - Erythema [Not Recovered/Not Resolved]
  - Arthralgia [Not Recovered/Not Resolved]
  - Lung disorder [Unknown]
  - Dental operation [Unknown]
  - Hepatic infection [Unknown]
  - Fistula [Not Recovered/Not Resolved]
  - Cardiac disorder [Unknown]
  - Injection site nerve damage [Recovered/Resolved]
  - Nephrolithiasis [Not Recovered/Not Resolved]
  - Abscess [Not Recovered/Not Resolved]
  - Hepatic lesion [Unknown]
  - Lupus-like syndrome [Unknown]
  - Benign neoplasm [Unknown]
  - Pneumonia [Unknown]
  - Incorrect dose administered [Not Recovered/Not Resolved]
  - Injection site pain [Not Recovered/Not Resolved]

NARRATIVE: CASE EVENT DATE: 2013
